FAERS Safety Report 23991649 (Version 4)
Quarter: 2024Q4

REPORT INFORMATION
  Report Type: Spontaneous
  Country: IT (occurrence: IT)
  Receive Date: 20240619
  Receipt Date: 20241024
  Transmission Date: 20250115
  Serious: Yes (Hospitalization, Other)
  Sender: SANDOZ
  Company Number: IT-SANDOZ-SDZ2023IT052828

PATIENT
  Age: 27 Year
  Sex: Female
  Weight: 144 kg

DRUGS (17)
  1. CLONAZEPAM [Suspect]
     Active Substance: CLONAZEPAM
     Indication: Epilepsy
     Dosage: UNK
     Route: 065
     Dates: start: 2022
  2. CORTISONE ACETATE [Suspect]
     Active Substance: CORTISONE ACETATE
     Indication: Epilepsy
     Dosage: 31.25 MG, QD
     Route: 065
  3. CORTISONE ACETATE [Suspect]
     Active Substance: CORTISONE ACETATE
     Indication: Hypopituitarism
     Dosage: 50 MG, QD
     Route: 065
     Dates: start: 2022
  4. DESMOPRESSIN [Suspect]
     Active Substance: DESMOPRESSIN
     Indication: Epilepsy
     Dosage: 180 MCG QD
     Route: 065
  5. DESMOPRESSIN [Suspect]
     Active Substance: DESMOPRESSIN
     Indication: Diabetes insipidus
  6. LEVOTHYROXINE [Suspect]
     Active Substance: LEVOTHYROXINE
     Indication: Epilepsy
     Dosage: 200 MCG QD
     Route: 065
  7. LEVOTHYROXINE [Suspect]
     Active Substance: LEVOTHYROXINE
     Indication: Hypopituitarism
  8. LACOSAMIDE [Suspect]
     Active Substance: LACOSAMIDE
     Indication: Epilepsy
     Dosage: 200 MG, QD
     Route: 065
  9. LAMOTRIGINE [Suspect]
     Active Substance: LAMOTRIGINE
     Indication: Epilepsy
     Dosage: UNK
     Route: 065
     Dates: start: 2022, end: 20220523
  10. LEVETIRACETAM [Suspect]
     Active Substance: LEVETIRACETAM
     Indication: Epilepsy
     Dosage: 2500 MG, QD
     Route: 065
     Dates: start: 2022
  11. LEVETIRACETAM [Suspect]
     Active Substance: LEVETIRACETAM
     Dosage: 2500 MG, QD
     Route: 065
     Dates: start: 2022
  12. LEVETIRACETAM [Suspect]
     Active Substance: LEVETIRACETAM
     Dosage: 3500 MG, QD
     Route: 065
     Dates: start: 2022
  13. LORAZEPAM [Suspect]
     Active Substance: LORAZEPAM
     Indication: Epilepsy
     Dosage: 4 MG
     Route: 065
     Dates: start: 2022
  14. PERAMPANEL [Suspect]
     Active Substance: PERAMPANEL
     Dosage: 16 MG, QD
     Route: 065
  15. PERAMPANEL [Suspect]
     Active Substance: PERAMPANEL
     Indication: Epilepsy
     Dosage: 8 MG, QD
     Route: 065
  16. SOMATROPIN [Suspect]
     Active Substance: SOMATROPIN
     Indication: Hypopituitarism
     Dosage: 0.4 MG, QD, 0.4 MG/DAY 5 DAYS PER WEEK
     Route: 065
  17. VALPROATE SODIUM [Suspect]
     Active Substance: VALPROATE SODIUM
     Indication: Epilepsy
     Dosage: 750 MG, QD
     Route: 065

REACTIONS (9)
  - Seizure [Unknown]
  - Urine output increased [Recovered/Resolved]
  - Hypernatraemia [Recovered/Resolved]
  - Cerebral salt-wasting syndrome [Recovered/Resolved]
  - Cerebral salt-wasting syndrome [Recovered/Resolved]
  - Product dose omission issue [Recovered/Resolved]
  - Multiple-drug resistance [Unknown]
  - Somnolence [Recovered/Resolved]
  - Off label use [Unknown]

NARRATIVE: CASE EVENT DATE: 20220101
